FAERS Safety Report 5796755-4 (Version None)
Quarter: 2008Q2

REPORT INFORMATION
  Report Type: 
  Country: None (occurrence: None)
  Receive Date: 20080630
  Receipt Date: 20080630
  Transmission Date: 20081010
  Serious: Yes (Hospitalization)
  Sender: FDA-Public Use
  Company Number: None

PATIENT
  Age: 72 Year
  Sex: Female
  Weight: 66 kg

DRUGS (15)
  1. VANCOMYCIN [Suspect]
     Indication: ACUTE MYELOID LEUKAEMIA
     Dosage: 1 GM Q24 IV BOLUS
     Route: 040
     Dates: start: 20080402, end: 20080409
  2. VANCOMYCIN [Suspect]
     Indication: SYSTEMIC INFLAMMATORY RESPONSE SYNDROME
     Dosage: 1 GM Q24 IV BOLUS
     Route: 040
     Dates: start: 20080402, end: 20080409
  3. ZOSYN [Suspect]
     Indication: ACUTE MYELOID LEUKAEMIA
     Dosage: 3.375 GM Q6H IV BOLUS
     Route: 040
     Dates: start: 20080402, end: 20080408
  4. ZOSYN [Suspect]
     Indication: SYSTEMIC INFLAMMATORY RESPONSE SYNDROME
     Dosage: 3.375 GM Q6H IV BOLUS
     Route: 040
     Dates: start: 20080402, end: 20080408
  5. ALLOPURINOL [Concomitant]
  6. CEFEPIME [Concomitant]
  7. CIPROFLOXACIN [Concomitant]
  8. FUROSEMIDE [Concomitant]
  9. HRDROXYUREA [Concomitant]
  10. METOPROLOL [Concomitant]
  11. MICAFUNGIN [Concomitant]
  12. PANTOPRZOLE [Concomitant]
  13. PIPERACILLIN AND TAZOBACTAM [Concomitant]
  14. RASBURICASE [Concomitant]
  15. VANCOMYCIN HCL [Concomitant]

REACTIONS (3)
  - HYPOTENSION [None]
  - NEPHROPATHY TOXIC [None]
  - RENAL IMPAIRMENT [None]
